FAERS Safety Report 13005748 (Version 1)
Quarter: 2016Q4

REPORT INFORMATION
  Report Type: Spontaneous
  Country: US (occurrence: US)
  Receive Date: 20161207
  Receipt Date: 20161207
  Transmission Date: 20170207
  Serious: Yes (Hospitalization, Other)
  Sender: FDA-Public Use
  Company Number: US-HORIZON-BUP-0121-2016

PATIENT
  Age: 3 Year
  Sex: Female

DRUGS (3)
  1. SODIUM BENZOATE [Concomitant]
     Active Substance: SODIUM BENZOATE
     Indication: ARGININOSUCCINATE SYNTHETASE DEFICIENCY
  2. ARGININE POWDER [Concomitant]
     Indication: ARGININOSUCCINATE SYNTHETASE DEFICIENCY
  3. BUPHENYL [Suspect]
     Active Substance: SODIUM PHENYLBUTYRATE
     Indication: ARGININOSUCCINATE SYNTHETASE DEFICIENCY
     Dosage: 1300 MG DAILY

REACTIONS (2)
  - Hyperammonaemia [Unknown]
  - Developmental delay [Unknown]
